FAERS Safety Report 9748864 (Version 1)
Quarter: 2013Q4

REPORT INFORMATION
  Report Type: Spontaneous
  Country: US (occurrence: US)
  Receive Date: 20131212
  Receipt Date: 20131212
  Transmission Date: 20140711
  Serious: No
  Sender: FDA-Public Use
  Company Number: US-INCYTE CORPORATION-2013IN002039

PATIENT
  Sex: Male

DRUGS (2)
  1. JAKAFI [Suspect]
     Indication: MYELOFIBROSIS
     Dosage: 20 MG, BID
     Route: 048
     Dates: start: 20130325, end: 2013
  2. JAKAFI [Suspect]
     Dosage: 20 MG IN AM, 10 MG IN PM
     Route: 048
     Dates: start: 2013

REACTIONS (2)
  - Fatigue [Unknown]
  - Anaemia [Unknown]
